FAERS Safety Report 5733318-0 (Version None)
Quarter: 2008Q2

REPORT INFORMATION
  Report Type: 
  Country: None (occurrence: None)
  Receive Date: 20080507
  Receipt Date: 20080422
  Transmission Date: 20081010
  Serious: Yes (Hospitalization)
  Sender: FDA-Public Use
  Company Number: CIO08006917

PATIENT
  Age: 57 Year
  Sex: Male

DRUGS (1)
  1. VICKS VAPORUB,       (CAMPHOR 129-150 MG, CEDAR LEAF OIL  UNK, CEDAR W [Suspect]
     Dosage: UNKNOWN, ORAL
     Route: 048

REACTIONS (4)
  - CONSTIPATION [None]
  - GASTROINTESTINAL OBSTRUCTION [None]
  - INTENTIONAL DRUG MISUSE [None]
  - STOMACH MASS [None]
